FAERS Safety Report 8628281 (Version 2)
Quarter: 2014Q2

REPORT INFORMATION
  Report Type: Report from Study
  Country: AU (occurrence: AU)
  Receive Date: 20120621
  Receipt Date: 20140502
  Transmission Date: 20141212
  Serious: Yes (Hospitalization, Other)
  Sender: FDA-Public Use
  Company Number: AU-ROCHE-1046966

PATIENT
  Age: 49 Year
  Sex: Male

DRUGS (8)
  1. BEVACIZUMAB [Suspect]
     Indication: GLIOBLASTOMA MULTIFORME
     Route: 065
     Dates: start: 20120131
  2. ETOPOSIDE [Suspect]
     Indication: GLIOBLASTOMA MULTIFORME
     Dosage: DATE OF LAST DOSE PRIOR TO SAE 24 FEB 2012
     Route: 065
     Dates: start: 20120204, end: 20120224
  3. AMLODIPINE [Concomitant]
     Route: 048
  4. LEVETIRACETAM [Concomitant]
     Route: 048
  5. VALSARTAN [Concomitant]
     Route: 048
  6. PANTOPRAZOLE [Concomitant]
     Route: 048
  7. COLOXYL + SENNA [Concomitant]
     Route: 048
  8. DEXAMETHASONE [Concomitant]
     Route: 065

REACTIONS (6)
  - Blood creatinine increased [Recovered/Resolved]
  - Neutropenia [Unknown]
  - Renal failure acute [Recovered/Resolved]
  - Hypophagia [Unknown]
  - Mucosal inflammation [Recovered/Resolved]
  - Dehydration [Unknown]
